FAERS Safety Report 24853124 (Version 1)
Quarter: 2025Q1

REPORT INFORMATION
  Report Type: Spontaneous
  Country: US (occurrence: US)
  Receive Date: 20250117
  Receipt Date: 20250117
  Transmission Date: 20250408
  Serious: Yes (Other)
  Sender: BRISTOL-MYERS SQUIBB COMPANY
  Company Number: US-BRISTOL-MYERS SQUIBB COMPANY-2025-006246

PATIENT
  Age: 49 Year
  Sex: Female

DRUGS (2)
  1. IPILIMUMAB [Suspect]
     Active Substance: IPILIMUMAB
     Indication: Conjunctival melanoma
     Dates: start: 202212
  2. NIVOLUMAB [Suspect]
     Active Substance: NIVOLUMAB
     Indication: Conjunctival melanoma
     Dates: start: 202212

REACTIONS (6)
  - Immune-mediated encephalitis [Recovered/Resolved]
  - Immune thrombocytopenia [Recovered/Resolved]
  - Immune-mediated hepatitis [Recovered/Resolved]
  - Immune-mediated dermatitis [Recovered/Resolved]
  - Immune-mediated hypophysitis [Recovered/Resolved]
  - Acute kidney injury [Recovered/Resolved]
